FAERS Safety Report 25112219 (Version 1)
Quarter: 2025Q1

REPORT INFORMATION
  Report Type: Report from Study
  Country: PH (occurrence: PH)
  Receive Date: 20250324
  Receipt Date: 20250324
  Transmission Date: 20250409
  Serious: Yes (Death)
  Sender: OTSUKA
  Company Number: PH-OTSUKA-2024_026436

PATIENT
  Sex: Male

DRUGS (2)
  1. TOLVAPTAN [Suspect]
     Active Substance: TOLVAPTAN
     Indication: Fluid retention
     Dosage: 1 DF, QW (SAMSCA 15 MG 1 TABLET OF EVERY SUNDAY ONLY)
     Route: 065
  2. TOLVAPTAN [Suspect]
     Active Substance: TOLVAPTAN
     Route: 048
     Dates: start: 202409

REACTIONS (2)
  - Cardiac disorder [Fatal]
  - Inappropriate schedule of product administration [Unknown]
